FAERS Safety Report 24737451 (Version 2)
Quarter: 2025Q3

REPORT INFORMATION
  Report Type: Report from Study
  Country: US (occurrence: US)
  Receive Date: 20241216
  Receipt Date: 20250803
  Transmission Date: 20251021
  Serious: Yes (Other)
  Sender: ALEXION PHARMACEUTICALS
  Company Number: US-AstraZeneca-CH-00766517A

PATIENT
  Sex: Male

DRUGS (2)
  1. ACALABRUTINIB [Suspect]
     Active Substance: ACALABRUTINIB
     Route: 065
  2. VENCLEXTA [Concomitant]
     Active Substance: VENETOCLAX
     Route: 065

REACTIONS (2)
  - Lymphoma [Unknown]
  - Malaise [Unknown]
